FAERS Safety Report 15109342 (Version 1)
Quarter: 2018Q2

REPORT INFORMATION
  Report Type: Spontaneous
  Country: US (occurrence: US)
  Receive Date: 20180611
  Receipt Date: 20180611
  Transmission Date: 20180711
  Serious: Yes (Hospitalization)
  Sender: FDA-Public Use
  Company Number: None

PATIENT
  Age: 81 Year
  Sex: Male

DRUGS (17)
  1. VITAMIN D3 [Concomitant]
     Active Substance: CHOLECALCIFEROL
  2. CAPECITABINE 500 MG [Suspect]
     Active Substance: CAPECITABINE
     Indication: COLON CANCER
     Route: 048
     Dates: start: 20180502, end: 20180516
  3. CAPECITABINE 500 MG [Suspect]
     Active Substance: CAPECITABINE
     Indication: METASTASES TO LIVER
  4. ELIQUIS [Concomitant]
     Active Substance: APIXABAN
  5. SOTALOL. [Concomitant]
     Active Substance: SOTALOL
  6. AVASTIN [Concomitant]
     Active Substance: BEVACIZUMAB
  7. MVI [Concomitant]
     Active Substance: VITAMINS
  8. 5-FU [Concomitant]
     Active Substance: FLUOROURACIL
  9. ASPIRIN. [Concomitant]
     Active Substance: ASPIRIN
  10. COMPAZINE [Suspect]
     Active Substance: PROCHLORPERAZINE MALEATE
  11. FERROUS SULFATE. [Concomitant]
     Active Substance: FERROUS SULFATE
  12. FISH OIL [Concomitant]
     Active Substance: FISH OIL
  13. PROCARDIA XL [Concomitant]
     Active Substance: NIFEDIPINE
  14. TAMSULOSIN [Concomitant]
     Active Substance: TAMSULOSIN
  15. ATORVASTATIN [Concomitant]
     Active Substance: ATORVASTATIN
  16. LEVOTHYROXINE. [Concomitant]
     Active Substance: LEVOTHYROXINE
  17. MOMETASONE [Concomitant]
     Active Substance: MOMETASONE

REACTIONS (5)
  - Diarrhoea [None]
  - Dehydration [None]
  - Atrial fibrillation [None]
  - Dysphonia [None]
  - Oropharyngeal pain [None]

NARRATIVE: CASE EVENT DATE: 20180526
